FAERS Safety Report 9888302 (Version 3)
Quarter: 2014Q1

REPORT INFORMATION
  Report Type: Spontaneous
  Country: US (occurrence: US)
  Receive Date: 20140211
  Receipt Date: 20140312
  Transmission Date: 20141002
  Serious: Yes (Other)
  Sender: FDA-Public Use
  Company Number: US-PFIZER INC-2014037055

PATIENT
  Sex: Female

DRUGS (1)
  1. XELJANZ [Suspect]
     Dosage: UNK

REACTIONS (2)
  - Gastrointestinal perforation [Unknown]
  - Intestinal perforation [Unknown]
